FAERS Safety Report 14689427 (Version 2)
Quarter: 2018Q2

REPORT INFORMATION
  Report Type: Spontaneous
  Country: JP (occurrence: JP)
  Receive Date: 20180328
  Receipt Date: 20180417
  Transmission Date: 20180711
  Serious: Yes (Other)
  Sender: FDA-Public Use
  Company Number: JP-ALLERGAN-1816063US

PATIENT
  Age: 84 Year
  Sex: Male

DRUGS (1)
  1. LINACLOTIDE - BP [Suspect]
     Active Substance: LINACLOTIDE
     Indication: IRRITABLE BOWEL SYNDROME
     Dosage: 0.5 MG/DAY GASTRIC FISTULA
     Dates: start: 20180317

REACTIONS (2)
  - Dysphagia [Unknown]
  - Off label use [Unknown]
